FAERS Safety Report 4584007-X (Version None)
Quarter: 2005Q1

REPORT INFORMATION
  Report Type: 
  Country: None (occurrence: None)
  Receive Date: 20050125
  Receipt Date: 20041005
  Transmission Date: 20050727
  Serious: No
  Sender: FDA-Public Use
  Company Number: USA041080118

PATIENT
  Age: 88 Year
  Sex: Female
  Weight: 29 kg

DRUGS (1)
  1. FORTEO [Suspect]
     Indication: BACK DISORDER
     Dates: start: 20040201

REACTIONS (2)
  - CONDITION AGGRAVATED [None]
  - FALL [None]
